FAERS Safety Report 4331423-7 (Version None)
Quarter: 2004Q1

REPORT INFORMATION
  Report Type: 
  Country: None (occurrence: None)
  Receive Date: 20040329
  Receipt Date: 20040315
  Transmission Date: 20041129
  Serious: Yes (Hospitalization)
  Sender: FDA-Public Use
  Company Number: 230013M04USA

PATIENT
  Age: 55 Year
  Sex: Female
  Weight: 77.1115 kg

DRUGS (9)
  1. REBIF [Suspect]
     Indication: MULTIPLE SCLEROSIS
     Dosage: 44 MCG, 3 IN 1 WEEKS, SUBCUTANEOUS
     Route: 058
     Dates: start: 20021101
  2. ASCORBIC ACID [Concomitant]
  3. CALCIUM CARBONATE [Concomitant]
  4. FLUOXETINE HCL [Concomitant]
  5. BACLOFEN [Concomitant]
  6. OXYBUTYNIN [Concomitant]
  7. MODAFINIL [Concomitant]
  8. TIZANIDINE HYDROCHLORIDE [Concomitant]
  9. CORTICOSTEROID NOS [Concomitant]

REACTIONS (2)
  - DEEP VEIN THROMBOSIS [None]
  - PULMONARY EMBOLISM [None]
